FAERS Safety Report 8337642-7 (Version None)
Quarter: 2012Q2

REPORT INFORMATION
  Report Type: 
  Country: None (occurrence: None)
  Receive Date: 20120504
  Receipt Date: 20120417
  Transmission Date: 20120825
  Serious: Yes (Death, Hospitalization, Other)
  Sender: FDA-Public Use
  Company Number: PL-ROCHE-1060671

PATIENT
  Sex: Female
  Weight: 53 kg

DRUGS (8)
  1. CYCLOPHOSPHAMIDE [Suspect]
     Indication: DIFFUSE LARGE B-CELL LYMPHOMA
     Route: 042
     Dates: start: 20120202, end: 20120214
  2. CYTOSAR-U [Concomitant]
     Indication: DIFFUSE LARGE B-CELL LYMPHOMA
     Route: 037
     Dates: start: 20120201, end: 20120201
  3. VINCRISTINE SULFATE [Suspect]
     Indication: DIFFUSE LARGE B-CELL LYMPHOMA
     Route: 042
     Dates: start: 20120202, end: 20120214
  4. METHOTREXATE [Suspect]
     Route: 037
     Dates: start: 20120201, end: 20120201
  5. RITUXIMAB [Suspect]
     Indication: DIFFUSE LARGE B-CELL LYMPHOMA
     Route: 042
     Dates: start: 20120202, end: 20120214
  6. DOXORUBICIN HCL [Suspect]
     Indication: DIFFUSE LARGE B-CELL LYMPHOMA
     Route: 042
     Dates: start: 20120202, end: 20120214
  7. METHOTREXATE [Suspect]
     Indication: DIFFUSE LARGE B-CELL LYMPHOMA
     Route: 042
     Dates: start: 20120202, end: 20120214
  8. DEXAMETHASONE [Concomitant]
     Indication: DIFFUSE LARGE B-CELL LYMPHOMA
     Route: 037
     Dates: start: 20120201, end: 20120201

REACTIONS (17)
  - BLOOD CREATININE INCREASED [None]
  - LEUKOCYTOSIS [None]
  - BLOOD LACTATE DEHYDROGENASE INCREASED [None]
  - APHASIA [None]
  - HEMIPARESIS [None]
  - PANCYTOPENIA [None]
  - ALANINE AMINOTRANSFERASE INCREASED [None]
  - PYREXIA [None]
  - CARDIOPULMONARY FAILURE [None]
  - EPILEPSY [None]
  - PNEUMONIA [None]
  - ASPARTATE AMINOTRANSFERASE INCREASED [None]
  - MUCOUS MEMBRANE DISORDER [None]
  - C-REACTIVE PROTEIN INCREASED [None]
  - COAGULOPATHY [None]
  - ANTIBIOTIC RESISTANT STAPHYLOCOCCUS TEST POSITIVE [None]
  - METABOLIC DISORDER [None]
